FAERS Safety Report 17265510 (Version 1)
Quarter: 2020Q1

REPORT INFORMATION
  Report Type: Spontaneous
  Country: US (occurrence: US)
  Receive Date: 20200114
  Receipt Date: 20200114
  Transmission Date: 20200409
  Serious: No
  Sender: FDA-Public Use
  Company Number: US-AMGEN-USASP2020002913

PATIENT
  Age: 74 Year
  Sex: Male

DRUGS (2)
  1. KYPROLIS [Suspect]
     Active Substance: CARFILZOMIB
     Indication: PLASMA CELL MYELOMA
     Dosage: 140 MILLIGRAM
     Route: 065
     Dates: start: 20190801
  2. KYPROLIS [Suspect]
     Active Substance: CARFILZOMIB
     Dosage: 140 MILLIGRAM
     Route: 065

REACTIONS (1)
  - Intercepted product preparation error [Recovered/Resolved]

NARRATIVE: CASE EVENT DATE: 20200103
